FAERS Safety Report 18506843 (Version 1)
Quarter: 2020Q4

REPORT INFORMATION
  Report Type: Spontaneous
  Country: US (occurrence: US)
  Receive Date: 20201114
  Receipt Date: 20201114
  Transmission Date: 20210114
  Serious: Yes (Disabling)
  Sender: FDA-Public Use
  Company Number: None

PATIENT
  Age: 37 Year
  Sex: Female
  Weight: 91.35 kg

DRUGS (4)
  1. MONTELUKAST GENERIC FOR SINGULAIR [Suspect]
     Active Substance: MONTELUKAST\MONTELUKAST SODIUM
     Indication: ASTHMA
     Dates: start: 19990101, end: 20201113
  2. KLONOPIN [Concomitant]
     Active Substance: CLONAZEPAM
  3. PRE-NATAL VITAMINS [Concomitant]
  4. SINGULAIR [Concomitant]
     Active Substance: MONTELUKAST SODIUM

REACTIONS (4)
  - Anxiety [None]
  - Depression [None]
  - Intentional self-injury [None]
  - Psoriasis [None]

NARRATIVE: CASE EVENT DATE: 19990101
